FAERS Safety Report 8237765-7 (Version None)
Quarter: 2012Q1

REPORT INFORMATION
  Report Type: 
  Country: None (occurrence: None)
  Receive Date: 20120323
  Receipt Date: 20120320
  Transmission Date: 20120608
  Serious: Yes (Other)
  Sender: FDA-Public Use
  Company Number: 2012-027641

PATIENT
  Age: 74 Year
  Sex: Female
  Weight: 50 kg

DRUGS (6)
  1. ACETYLSALICYLIC ACID SRT [Suspect]
     Indication: ISCHAEMIC HEART DISEASE PROPHYLAXIS
     Dosage: 1 DF, QD, ORAL
     Route: 048
     Dates: start: 20120316, end: 20120319
  2. UNCODEABLE ^UNCLASSIFIABLE^ (UNCODEABLE ^UNCLASSIFIABLE^) [Concomitant]
  3. PREMARIN [Concomitant]
  4. ALEVE [Suspect]
     Indication: ARTHRITIS
     Dosage: BOTTLE COUNT 80, ORAL
     Route: 048
     Dates: start: 20110801
  5. DILTIAZEM [Concomitant]
  6. UNCODEABLE ^UNCLASSIFIABLE^ (UNCODEABLE ^UNCLASSIFIABLE^) [Concomitant]

REACTIONS (1)
  - HAEMATOCHEZIA [None]
